FAERS Safety Report 12556415 (Version 2)
Quarter: 2017Q1

REPORT INFORMATION
  Report Type: Report from Study
  Country: US (occurrence: US)
  Receive Date: 20160714
  Receipt Date: 20170307
  Transmission Date: 20170428
  Serious: Yes (Other)
  Sender: FDA-Public Use
  Company Number: US-BIOGEN-2016BI00251891

PATIENT
  Sex: Female

DRUGS (1)
  1. TYSABRI [Suspect]
     Active Substance: NATALIZUMAB
     Indication: MULTIPLE SCLEROSIS
     Route: 042
     Dates: start: 20130401, end: 20170201

REACTIONS (8)
  - Feeding disorder [Not Recovered/Not Resolved]
  - Memory impairment [Not Recovered/Not Resolved]
  - Temporomandibular joint syndrome [Not Recovered/Not Resolved]
  - Weight decreased [Recovered/Resolved]
  - Tooth disorder [Unknown]
  - Oral infection [Recovered/Resolved]
  - Tooth infection [Unknown]
  - Seizure [Unknown]

NARRATIVE: CASE EVENT DATE: 2016
